FAERS Safety Report 5301705-0 (Version None)
Quarter: 2007Q2

REPORT INFORMATION
  Report Type: 
  Country: None (occurrence: None)
  Receive Date: 20070419
  Receipt Date: 20070405
  Transmission Date: 20071010
  Serious: Yes (Hospitalization)
  Sender: FDA-Public Use
  Company Number: PHRM2007FR00989

PATIENT
  Age: 79 Year
  Sex: Female
  Weight: 60 kg

DRUGS (4)
  1. TEGRETOL [Suspect]
     Dosage: 200 MG, TID
     Route: 048
     Dates: start: 19950101
  2. KARDEGIC [Suspect]
     Dosage: 75 MG, QD
     Route: 048
     Dates: end: 20070222
  3. LAROXYL [Suspect]
     Route: 048
     Dates: end: 20070129
  4. ZOLPIDEM [Suspect]
     Dosage: 10 MG, QD
     Route: 048
     Dates: end: 20070213

REACTIONS (21)
  - ABDOMINAL PAIN UPPER [None]
  - ANOREXIA [None]
  - ASPARTATE AMINOTRANSFERASE INCREASED [None]
  - BLOOD ALKALINE PHOSPHATASE INCREASED [None]
  - BLOOD PHOSPHORUS DECREASED [None]
  - CARCINOEMBRYONIC ANTIGEN INCREASED [None]
  - FOOD POISONING [None]
  - FUNGAL SKIN INFECTION [None]
  - GAMMA-GLUTAMYLTRANSFERASE INCREASED [None]
  - HYPOALBUMINAEMIA [None]
  - HYPOCALCAEMIA [None]
  - HYPOPROTEINAEMIA [None]
  - LYMPHOCYTOSIS [None]
  - METASTASES TO BONE [None]
  - NAUSEA [None]
  - NEOPLASM MALIGNANT [None]
  - OSTEOLYSIS [None]
  - OSTEOSCLEROSIS [None]
  - RENAL CYST [None]
  - THROMBOCYTOPENIA [None]
  - VOMITING [None]
